FAERS Safety Report 5425552-4 (Version None)
Quarter: 2007Q3

REPORT INFORMATION
  Report Type: 
  Country: None (occurrence: None)
  Receive Date: 20070824
  Receipt Date: 20070813
  Transmission Date: 20080115
  Serious: Yes (Hospitalization)
  Sender: FDA-Public Use
  Company Number: US-PFIZER INC-2007060965

PATIENT
  Age: 61 Year
  Sex: Female
  Weight: 64 kg

DRUGS (7)
  1. EXEMESTANE [Suspect]
     Indication: BREAST CANCER
     Route: 048
     Dates: start: 20041012, end: 20070712
  2. MONTELUKAST SODIUM [Concomitant]
     Dosage: DAILY DOSE:10MG-FREQ:DAILY
  3. QVAR 40 [Concomitant]
  4. VITAMIN CAP [Concomitant]
  5. CALCIUM [Concomitant]
  6. PREVACID [Concomitant]
     Dosage: DAILY DOSE:30MG-FREQ:DAILY
  7. PRAVACHOL [Concomitant]
     Indication: DYSLIPIDAEMIA

REACTIONS (1)
  - MYOCARDIAL ISCHAEMIA [None]
